FAERS Safety Report 8778417 (Version 1)
Quarter: 2012Q4

REPORT INFORMATION
  Report Type: 
  Country: US (occurrence: US)
  Receive Date: 20120912
  Receipt Date: 20120912
  Transmission Date: 20130627
  Serious: Yes (Other)
  Sender: FDA-Public Use
  Company Number: US-GLAXOSMITHKLINE-A0992926A

PATIENT
  Age: 60 Year
  Sex: Female

DRUGS (11)
  1. WELLBUTRIN [Suspect]
     Indication: DEPRESSION
     Route: 065
  2. PAROXETINE [Suspect]
     Indication: DEPRESSION
     Route: 065
  3. TRAZODONE [Suspect]
     Indication: DEPRESSION
     Route: 065
  4. LYRICA [Suspect]
     Indication: FIBROMYALGIA
     Route: 065
  5. LEVOTHYROXINE [Suspect]
     Indication: HYPOTHYROIDISM
     Route: 065
  6. PROPRANOLOL [Suspect]
     Indication: BLOOD PRESSURE ABNORMAL
     Route: 065
  7. ALBUTEROL SULFATE [Suspect]
     Indication: MULTIPLE ALLERGIES
     Route: 065
  8. OMEPRAZOLE [Suspect]
     Indication: GASTRIC DISORDER
     Route: 065
  9. FIORICET [Suspect]
     Indication: MIGRAINE
     Route: 065
  10. RADIATION THERAPY [Suspect]
     Indication: PRODUCT USED FOR UNKNOWN INDICATION
     Route: 065
  11. UNKNOWN MEDICATION [Suspect]
     Indication: PRODUCT USED FOR UNKNOWN INDICATION
     Route: 065

REACTIONS (8)
  - Liposarcoma [Unknown]
  - Lipoma [Unknown]
  - Alopecia [Unknown]
  - Hair growth abnormal [Unknown]
  - Lipoma excision [Unknown]
  - Sarcoma excision [Unknown]
  - Jaw operation [Unknown]
  - Blood cholesterol increased [Unknown]
